FAERS Safety Report 5822102-5 (Version None)
Quarter: 2008Q3

REPORT INFORMATION
  Report Type: 
  Country: None (occurrence: None)
  Receive Date: 20080725
  Receipt Date: 20080714
  Transmission Date: 20090109
  Serious: Yes (Other)
  Sender: FDA-Public Use
  Company Number: GB-JNJFOC-20080704444

PATIENT
  Sex: Male

DRUGS (2)
  1. PREZISTA [Suspect]
     Indication: HIV INFECTION
     Route: 048
  2. TADALAFIL [Concomitant]
     Indication: ERECTILE DYSFUNCTION

REACTIONS (1)
  - WOLFF-PARKINSON-WHITE SYNDROME [None]
